FAERS Safety Report 24054491 (Version 1)
Quarter: 2024Q3

REPORT INFORMATION
  Report Type: Spontaneous
  Country: US (occurrence: US)
  Receive Date: 20240705
  Receipt Date: 20240705
  Transmission Date: 20241016
  Serious: Yes (Hospitalization, Other)
  Sender: RANBAXY
  Company Number: US-SUN PHARMACEUTICAL INDUSTRIES LTD-2024R1-455160

PATIENT
  Age: 63 Year
  Sex: Male

DRUGS (2)
  1. CARVEDILOL [Interacting]
     Active Substance: CARVEDILOL
     Indication: Acute myocardial infarction
     Route: 065
  2. ATENOLOL [Interacting]
     Active Substance: ATENOLOL
     Indication: Acute myocardial infarction
     Route: 065

REACTIONS (3)
  - Bradycardia [Unknown]
  - Hypotension [Unknown]
  - Drug interaction [Unknown]
